FAERS Safety Report 19188982 (Version 1)
Quarter: 2021Q2

REPORT INFORMATION
  Report Type: Spontaneous
  Country: ES (occurrence: ES)
  Receive Date: 20210428
  Receipt Date: 20210428
  Transmission Date: 20210717
  Serious: Yes (Hospitalization)
  Sender: FDA-Public Use
  Company Number: NVSC2021ES088077

PATIENT
  Age: 63 Year
  Sex: Female

DRUGS (3)
  1. ZALDIAR [Interacting]
     Active Substance: ACETAMINOPHEN\TRAMADOL HYDROCHLORIDE
     Indication: BACK PAIN
     Dosage: 1 DF, Q8H
     Route: 048
     Dates: start: 20210328
  2. RIVOTRIL [Interacting]
     Active Substance: CLONAZEPAM
     Indication: BACK PAIN
     Dosage: 11 DRP, QD
     Route: 048
     Dates: start: 20210328, end: 20210331
  3. GABAPENTIN. [Suspect]
     Active Substance: GABAPENTIN
     Indication: BACK PAIN
     Dosage: 300 MG, Q8H
     Route: 048
     Dates: start: 20210328

REACTIONS (3)
  - Syncope [Recovered/Resolved]
  - Aphasia [Recovered/Resolved]
  - Headache [Recovered/Resolved]

NARRATIVE: CASE EVENT DATE: 20210331
